FAERS Safety Report 4454433-8 (Version None)
Quarter: 2004Q3

REPORT INFORMATION
  Report Type: 
  Country: None (occurrence: None)
  Receive Date: 20040917
  Receipt Date: 20040917
  Transmission Date: 20050211
  Serious: Yes (Other)
  Sender: FDA-Public Use
  Company Number: None

PATIENT
  Age: 13 Year
  Sex: Male
  Weight: 56 kg

DRUGS (2)
  1. VANCOMYCIN [Suspect]
     Indication: CELLULITIS
     Dosage: 1GM IV Q 12 HRS
     Route: 042
     Dates: start: 20040826, end: 20040831
  2. VANCOMYCIN [Suspect]
     Indication: STAPHYLOCOCCAL INFECTION
     Dosage: 1GM IV Q 12 HRS
     Route: 042
     Dates: start: 20040826, end: 20040831

REACTIONS (2)
  - PYREXIA [None]
  - RASH [None]
